FAERS Safety Report 20189059 (Version 1)
Quarter: 2021Q4

REPORT INFORMATION
  Report Type: Spontaneous
  Country: US (occurrence: US)
  Receive Date: 20211215
  Receipt Date: 20211215
  Transmission Date: 20220303
  Serious: Yes (Hospitalization)
  Sender: FDA-Public Use
  Company Number: US-GILEAD-2021-0560971

PATIENT
  Age: 80 Year
  Sex: Male

DRUGS (1)
  1. VEKLURY [Suspect]
     Active Substance: REMDESIVIR
     Indication: Product used for unknown indication
     Dosage: 100 MG
     Route: 042
     Dates: end: 20211209

REACTIONS (1)
  - Injection site extravasation [Unknown]

NARRATIVE: CASE EVENT DATE: 20211209
